FAERS Safety Report 15626919 (Version 1)
Quarter: 2018Q4

REPORT INFORMATION
  Report Type: Spontaneous
  Country: US (occurrence: US)
  Receive Date: 20181116
  Receipt Date: 20181116
  Transmission Date: 20190205
  Serious: Yes (Hospitalization)
  Sender: FDA-Public Use
  Company Number: None

PATIENT
  Sex: Female

DRUGS (20)
  1. FEROSUL [Concomitant]
  2. BETHKIS [Concomitant]
     Active Substance: TOBRAMYCIN
  3. TRAMADOL. [Concomitant]
     Active Substance: TRAMADOL
  4. CETIRIZINE [Concomitant]
     Active Substance: CETIRIZINE HYDROCHLORIDE
  5. FERRALET [Concomitant]
  6. AZITHROMYCIN ANHYDROUS. [Concomitant]
     Active Substance: AZITHROMYCIN ANHYDROUS
  7. SMZ/TMP [Concomitant]
     Active Substance: SULFAMETHOXAZOLE\TRIMETHOPRIM
  8. ALBUTEROL. [Concomitant]
     Active Substance: ALBUTEROL
  9. PROAIR HFA [Concomitant]
     Active Substance: ALBUTEROL SULFATE
  10. LEVALBUTEROL. [Concomitant]
     Active Substance: LEVALBUTEROL
  11. BUDESONIDE. [Concomitant]
     Active Substance: BUDESONIDE
  12. DEKAS PLUS [Concomitant]
  13. SODIUM CHLORIDE. [Concomitant]
     Active Substance: SODIUM CHLORIDE
  14. MAPAP [Concomitant]
     Active Substance: ACETAMINOPHEN
  15. CAYSTON [Concomitant]
     Active Substance: AZTREONAM
  16. CREON [Concomitant]
     Active Substance: PANCRELIPASE AMYLASE\PANCRELIPASE LIPASE\PANCRELIPASE PROTEASE
  17. VALACYCLOVIR [Concomitant]
     Active Substance: VALACYCLOVIR HYDROCHLORIDE
  18. PULMOZYME [Suspect]
     Active Substance: DORNASE ALFA
     Indication: CYSTIC FIBROSIS
     Route: 055
     Dates: start: 20140617
  19. FLUTICASONE. [Concomitant]
     Active Substance: FLUTICASONE
  20. DOK [Concomitant]
     Active Substance: DOCUSATE SODIUM

REACTIONS (1)
  - Cystic fibrosis [None]
